FAERS Safety Report 10067357 (Version 2)
Quarter: 2014Q2

REPORT INFORMATION
  Report Type: Spontaneous
  Country: US (occurrence: US)
  Receive Date: 20140409
  Receipt Date: 20140409
  Transmission Date: 20141212
  Serious: No
  Sender: FDA-Public Use
  Company Number: US-DRREDDYS-USA/USA/13/0033138

PATIENT
  Age: 69 Year
  Sex: Male

DRUGS (6)
  1. SILVER SULFADIAZINE [Suspect]
     Indication: CARDIOVASCULAR DISORDER
     Dosage: 400 GM JAR
     Route: 061
  2. SILVER SULFADIAZINE [Suspect]
     Indication: SKIN ULCER
  3. GELOCAST [Concomitant]
     Indication: PRODUCT USED FOR UNKNOWN INDICATION
     Route: 065
  4. UNNA BOOT [Concomitant]
     Indication: PRODUCT USED FOR UNKNOWN INDICATION
     Route: 065
  5. LISINOPRIL [Concomitant]
     Indication: PRODUCT USED FOR UNKNOWN INDICATION
     Route: 065
  6. SYMBICORT [Concomitant]
     Indication: PRODUCT USED FOR UNKNOWN INDICATION
     Route: 065

REACTIONS (1)
  - Wound infection helminthic [Not Recovered/Not Resolved]
